FAERS Safety Report 6831622-6 (Version None)
Quarter: 2010Q3

REPORT INFORMATION
  Report Type: 
  Country: None (occurrence: None)
  Receive Date: 20100707
  Receipt Date: 20100628
  Transmission Date: 20110219
  Serious: Yes (Hospitalization, Disabling)
  Sender: FDA-Public Use
  Company Number: 7009428

PATIENT
  Age: 68 Year
  Sex: Female

DRUGS (5)
  1. REBIF [Suspect]
     Indication: MULTIPLE SCLEROSIS
     Dosage: 44 MCG, 3 IN 1WK SUBCUTANEOUS
     Route: 058
     Dates: start: 20050101
  2. DIAZEPAM [Concomitant]
  3. ASPIRIN [Concomitant]
  4. UNSPECIFIED VITAMINS (VITAMINS) [Concomitant]
  5. UNSPECIFIED MEDICATIONS (ALL OTHER THERAPEUTIC PRODUCTS) [Concomitant]

REACTIONS (6)
  - ASTHENIA [None]
  - BREAST PAIN [None]
  - HERPES ZOSTER [None]
  - IMMOBILE [None]
  - PAIN IN EXTREMITY [None]
  - URINARY TRACT INFECTION [None]
